FAERS Safety Report 8571333-2 (Version None)
Quarter: 2012Q3

REPORT INFORMATION
  Report Type: 
  Country: None (occurrence: None)
  Receive Date: 20120806
  Receipt Date: 20120726
  Transmission Date: 20120928
  Serious: Yes (Other)
  Sender: FDA-Public Use
  Company Number: JP-VERTEX PHARMACEUTICALS INC.-AE-2012-011176

PATIENT
  Age: 64 Year
  Sex: Male

DRUGS (6)
  1. RIBAVIRIN [Concomitant]
     Indication: HEPATITIS C
     Route: 048
     Dates: start: 20120424
  2. PEGINTERFERON ALFA-2B [Concomitant]
     Indication: HEPATITIS C
     Route: 058
     Dates: start: 20120424
  3. TELAVIC (TELAPREVIR) [Suspect]
     Indication: HEPATITIS C
     Route: 048
     Dates: start: 20120424, end: 20120606
  4. RIBAVIRIN [Concomitant]
     Route: 048
     Dates: start: 20120523
  5. RIBAVIRIN [Concomitant]
     Route: 048
     Dates: end: 20120613
  6. RIBAVIRIN [Concomitant]
     Route: 048
     Dates: start: 20120614

REACTIONS (1)
  - RENAL IMPAIRMENT [None]
